FAERS Safety Report 5882202-0 (Version None)
Quarter: 2008Q3

REPORT INFORMATION
  Report Type: 
  Country: None (occurrence: None)
  Receive Date: 20080912
  Receipt Date: 20080725
  Transmission Date: 20090109
  Serious: No
  Sender: FDA-Public Use
  Company Number: US-ABBOTT-08P-163-0466211-00

PATIENT
  Sex: Male
  Weight: 77.18 kg

DRUGS (2)
  1. HUMIRA [Suspect]
     Indication: CROHN'S DISEASE
     Route: 058
     Dates: start: 20080501
  2. HUMIRA [Suspect]
     Route: 058

REACTIONS (3)
  - HEPATITIS C POSITIVE [None]
  - INJECTION SITE PAIN [None]
  - INJECTION SITE REACTION [None]
